FAERS Safety Report 9500795 (Version 1)
Quarter: 2013Q1

REPORT INFORMATION
  Report Type: Spontaneous
  Country: US (occurrence: None)
  Receive Date: 20130107
  Receipt Date: 20130107
  Transmission Date: 20140127
  Serious: No
  Sender: FDA-Public Use
  Company Number: PHHY2012US102626

PATIENT
  Age: 67 Year
  Sex: Male
  Weight: 83.9 kg

DRUGS (16)
  1. GILENYA [Suspect]
     Route: 048
     Dates: end: 20110927
  2. TEGRETOL [Concomitant]
  3. ZANAFLEX [Concomitant]
  4. VIAGRA (SILDENAFIL CITRATE) [Concomitant]
  5. AMLODIPINE (AMLODIPINE) [Concomitant]
  6. CENTRUM SILVER [Concomitant]
  7. FINACEA [Concomitant]
  8. GLUCOSAMINE W/CHONDROITIN SULFATE, GLUCOSAMINE) [Concomitant]
  9. LASIX (FUROSEMIDE) [Concomitant]
  10. METROGEL (METRONIDAZOLE) GEL, 1% [Concomitant]
  11. PAXIL [Concomitant]
  12. PRAVASTATIN (PRAVASTATIN) [Concomitant]
  13. SELENIUM [Concomitant]
  14. SUPER CRANBERRY [Concomitant]
  15. TAMSULOSIN [Concomitant]
  16. VITAMIN D [Concomitant]

REACTIONS (4)
  - Restless legs syndrome [None]
  - Occipital neuralgia [None]
  - Impaired healing [None]
  - Pain in extremity [None]
